FAERS Safety Report 12604024 (Version 1)
Quarter: 2016Q3

REPORT INFORMATION
  Report Type: Spontaneous
  Country: FR (occurrence: FR)
  Receive Date: 20160728
  Receipt Date: 20160728
  Transmission Date: 20161109
  Serious: Yes (Other)
  Sender: FDA-Public Use
  Company Number: FR-FERRINGPH-2016FE03416

PATIENT

DRUGS (3)
  1. LOVENOX [Concomitant]
     Active Substance: ENOXAPARIN SODIUM
     Indication: LONG QT SYNDROME CONGENITAL
     Route: 064
  2. PROPESS [Suspect]
     Active Substance: DINOPROSTONE
     Indication: LABOUR INDUCTION
     Dosage: UNK
     Route: 064
  3. CORGARD [Concomitant]
     Active Substance: NADOLOL
     Indication: LONG QT SYNDROME CONGENITAL
     Route: 064

REACTIONS (1)
  - Foetal heart rate disorder [Recovered/Resolved]

NARRATIVE: CASE EVENT DATE: 20130724
